FAERS Safety Report 6731821-8 (Version None)
Quarter: 2010Q2

REPORT INFORMATION
  Report Type: 
  Country: None (occurrence: None)
  Receive Date: 20100519
  Receipt Date: 20100505
  Transmission Date: 20101027
  Serious: Yes (Other)
  Sender: FDA-Public Use
  Company Number: PHHY2010AT29459

PATIENT
  Age: 35 Year
  Sex: Female
  Weight: 70 kg

DRUGS (11)
  1. LEPONEX [Suspect]
     Dosage: 400 MG
     Dates: start: 20090521, end: 20090527
  2. LEPONEX [Suspect]
     Dosage: 450 MG
     Dates: start: 20090528
  3. OXAZEPAM [Suspect]
     Dosage: 52.5 MG
     Dates: start: 20090521, end: 20090525
  4. OXAZEPAM [Suspect]
     Dosage: 75 MG
  5. OXAZEPAM [Suspect]
     Dosage: 160 MG
  6. LAMICTAL [Concomitant]
     Indication: PROPHYLAXIS
     Dosage: 100 MG DAILY
     Dates: start: 20090427, end: 20090428
  7. LAMICTAL [Concomitant]
     Dosage: 150 MG DAILY
     Dates: start: 20090529
  8. LAMICTAL [Concomitant]
     Dosage: 2 X 100 MG
  9. HALCION [Concomitant]
     Dosage: 0.25  MG DAILY
     Dates: start: 20090425
  10. DOMINAL [Concomitant]
     Dosage: 80 MG DAILY
     Dates: start: 20090501
  11. ZYPREXA [Concomitant]
     Dosage: 20 MG  DAILY/ 2 X 10
     Dates: start: 20090529

REACTIONS (12)
  - BLOOD CREATINE PHOSPHOKINASE INCREASED [None]
  - BLOOD PRESSURE INCREASED [None]
  - COMA [None]
  - DYSPNOEA [None]
  - EPILEPSY [None]
  - GAZE PALSY [None]
  - MANIA [None]
  - MICTURITION DISORDER [None]
  - MUSCLE SPASMS [None]
  - SALIVARY HYPERSECRETION [None]
  - TONGUE BITING [None]
  - WHITE BLOOD CELL COUNT INCREASED [None]
